FAERS Safety Report 8194271-6 (Version None)
Quarter: 2012Q1

REPORT INFORMATION
  Report Type: 
  Country: None (occurrence: None)
  Receive Date: 20120308
  Receipt Date: 20120227
  Transmission Date: 20120608
  Serious: Yes (Hospitalization)
  Sender: FDA-Public Use
  Company Number: US-JNJFOC-20120213851

PATIENT
  Sex: Female
  Weight: 111.13 kg

DRUGS (9)
  1. LEVOTHYROXINE SODIUM [Concomitant]
     Indication: HYPOTHYROIDISM
     Route: 048
  2. STELARA [Suspect]
     Route: 058
     Dates: start: 20120201
  3. SIMVASTATIN [Concomitant]
     Indication: BLOOD CHOLESTEROL INCREASED
     Route: 048
  4. LISINOPRIL [Concomitant]
     Indication: HYPERTENSION
     Route: 048
  5. STELARA [Suspect]
     Indication: PSORIASIS
     Route: 058
     Dates: end: 20100501
  6. STELARA [Suspect]
     Route: 058
     Dates: start: 20090101, end: 20090101
  7. PANTOPRAZOLE [Concomitant]
     Indication: GASTROOESOPHAGEAL REFLUX DISEASE
     Route: 048
  8. ADVAIR DISKUS 100/50 [Concomitant]
     Indication: ASTHMA
     Route: 055
  9. ADVAIR DISKUS 100/50 [Concomitant]
     Indication: CHRONIC OBSTRUCTIVE PULMONARY DISEASE
     Route: 055

REACTIONS (5)
  - PULMONARY EMBOLISM [None]
  - PNEUMONIA [None]
  - DEPRESSION [None]
  - IRON DEFICIENCY [None]
  - BREAST CANCER [None]
